FAERS Safety Report 13695579 (Version 1)
Quarter: 2017Q2

REPORT INFORMATION
  Report Type: Other
  Country: NL (occurrence: US)
  Receive Date: 20170627
  Receipt Date: 20170627
  Transmission Date: 20170830
  Serious: No
  Sender: FDA-Public Use
  Company Number: NL-FRESENIUS MEDICAL CARE RENAL THERAPIES GROUP-FMC-1706-000662

PATIENT
  Age: 43 Year
  Sex: Female

DRUGS (6)
  1. PHOSLO [Suspect]
     Active Substance: CALCIUM ACETATE
     Indication: HYPERPHOSPHATAEMIA
  2. ALPHACALCIDOL [Concomitant]
     Active Substance: ALFACALCIDOL
  3. EXTRANEAL [Concomitant]
     Active Substance: CALCIUM CHLORIDE\ICODEXTRIN\MAGNESIUM CHLORIDE\SODIUM CHLORIDE\SODIUM LACTATE
     Indication: END STAGE RENAL DISEASE
  4. SEVELAMER [Concomitant]
     Active Substance: SEVELAMER
  5. COLECALCIFEROL [Concomitant]
     Active Substance: CHOLECALCIFEROL
  6. PHYSIONEAL [Concomitant]
     Active Substance: CALCIUM CHLORIDE\DEXTROSE\MAGNESIUM CHLORIDE\SODIUM CHLORIDE SOLUTION
     Indication: END STAGE RENAL DISEASE

REACTIONS (1)
  - Panniculitis [Recovered/Resolved]
